FAERS Safety Report 9922178 (Version 3)
Quarter: 2014Q2

REPORT INFORMATION
  Report Type: Spontaneous
  Country: US (occurrence: US)
  Receive Date: 20140225
  Receipt Date: 20140411
  Transmission Date: 20141212
  Serious: Yes (Other)
  Sender: FDA-Public Use
  Company Number: US-PFIZER INC-2014053079

PATIENT
  Sex: Female

DRUGS (1)
  1. LYRICA [Suspect]
     Dosage: 150M / 3 X3 A DAY

REACTIONS (5)
  - Neck deformity [Unknown]
  - Shoulder deformity [Unknown]
  - Limb deformity [Unknown]
  - Thermal burn [Unknown]
  - Movement disorder [Unknown]
